FAERS Safety Report 21701632 (Version 5)
Quarter: 2023Q1

REPORT INFORMATION
  Report Type: Report from Study
  Country: GB (occurrence: None)
  Receive Date: 20221208
  Receipt Date: 20230223
  Transmission Date: 20230417
  Serious: Yes (Hospitalization)
  Sender: FDA-Public Use
  Company Number: GB-ROCHE-3230176

PATIENT
  Age: 59 Year
  Sex: Female
  Weight: 113.8 kg

DRUGS (13)
  1. GLOFITAMAB [Suspect]
     Active Substance: GLOFITAMAB
     Indication: Follicular lymphoma
     Dosage: ON 19/OCT/2022, SHE RECEIVED MOST RECENT DOSE 30 MG OF STUDY DRUG GLOFITAMAB PRIOR TO SAE/AE.?ON 16/
     Route: 042
     Dates: start: 20220905
  2. ATEZOLIZUMAB [Suspect]
     Active Substance: ATEZOLIZUMAB
     Indication: Follicular lymphoma
     Dosage: ON 19/OCT/2022, SHE RECEIVED MOST RECENT DOSE 1200 MG OF STUDY DRUG ATEZOLIZUMAB PRIOR TO SAE/AE.?ON
     Route: 041
     Dates: start: 20220928
  3. OBINUTUZUMAB [Suspect]
     Active Substance: OBINUTUZUMAB
     Indication: Follicular lymphoma
     Dosage: ON 30/AUG/2022, SHE RECEIVED MOST RECENT DOSE 1000 MG OF STUDY DRUG OBINUTUZUMAB PRIOR TO SAE/AE.
     Route: 042
     Dates: start: 20220830
  4. ZIRCONIUM ZR-89-DESFERRIOXAMINE-IAB22M2C [Suspect]
     Active Substance: ZIRCONIUM ZR-89-DESFERRIOXAMINE-IAB22M2C
     Indication: Follicular lymphoma
     Dosage: START DATE OF MOST RECENT DOSE OF STUDY DRUG PRIOR TO AE/SAE: 06-SEP-2022
     Route: 042
     Dates: start: 20220824
  5. FILGRASTIM [Concomitant]
     Active Substance: FILGRASTIM
     Indication: Dry mouth
  6. DEXAMETHASONE [Concomitant]
     Active Substance: DEXAMETHASONE
     Route: 042
     Dates: start: 20221116, end: 20221116
  7. ACETAMINOPHEN [Concomitant]
     Active Substance: ACETAMINOPHEN
     Route: 048
     Dates: start: 20221116, end: 20221116
  8. CHLORPHENIRAMINE MALEATE [Concomitant]
     Active Substance: CHLORPHENIRAMINE MALEATE
     Route: 042
     Dates: start: 20221116, end: 20221116
  9. LANSOPRAZOLE [Concomitant]
     Active Substance: LANSOPRAZOLE
     Dates: start: 20220830
  10. ACYCLOVIR [Concomitant]
     Active Substance: ACYCLOVIR
     Dates: start: 20220830
  11. AZITHROMYCIN [Concomitant]
     Active Substance: AZITHROMYCIN
     Dates: start: 20221004
  12. AMOXICILLIN [Concomitant]
     Active Substance: AMOXICILLIN
     Indication: Bacterial infection
     Dates: start: 20221203, end: 20221210
  13. CLARITHROMYCIN [Concomitant]
     Active Substance: CLARITHROMYCIN
     Indication: Bacterial infection
     Dates: start: 20221203, end: 20221210

REACTIONS (1)
  - Gastric ulcer [Not Recovered/Not Resolved]

NARRATIVE: CASE EVENT DATE: 20221121
